FAERS Safety Report 14592290 (Version 1)
Quarter: 2018Q1

REPORT INFORMATION
  Report Type: Report from Study
  Country: PL (occurrence: PL)
  Receive Date: 20180302
  Receipt Date: 20180302
  Transmission Date: 20180509
  Serious: Yes (Hospitalization)
  Sender: FDA-Public Use
  Company Number: PL-ASTRAZENECA-2017SE78525

PATIENT
  Age: 61 Year
  Sex: Male

DRUGS (18)
  1. RITUXIMAB. [Suspect]
     Active Substance: RITUXIMAB
     Indication: MANTLE CELL LYMPHOMA
     Route: 042
  2. EPLERENONE. [Concomitant]
     Active Substance: EPLERENONE
     Indication: HYPERTENSION
     Route: 048
     Dates: start: 20130101
  3. ACALABRUTINIB. [Suspect]
     Active Substance: ACALABRUTINIB
     Indication: MANTLE CELL LYMPHOMA
     Route: 048
     Dates: start: 20170608, end: 20170704
  4. ACALABRUTINIB. [Suspect]
     Active Substance: ACALABRUTINIB
     Indication: MANTLE CELL LYMPHOMA
     Route: 048
     Dates: start: 20170705, end: 20170705
  5. BISEPTOL [Concomitant]
     Active Substance: SULFAMETHOXAZOLE\TRIMETHOPRIM
     Indication: INFECTION PROPHYLAXIS
     Route: 048
     Dates: start: 20170216
  6. ACALABRUTINIB. [Suspect]
     Active Substance: ACALABRUTINIB
     Indication: MANTLE CELL LYMPHOMA
     Route: 048
     Dates: start: 20170214, end: 20170313
  7. RITUXIMAB. [Suspect]
     Active Substance: RITUXIMAB
     Indication: MANTLE CELL LYMPHOMA
     Dosage: 685 MG (DAY 1 OF EACH 28-DAY CYCLE)
     Route: 042
     Dates: start: 20170214, end: 20170214
  8. RITUXIMAB. [Suspect]
     Active Substance: RITUXIMAB
     Indication: MANTLE CELL LYMPHOMA
     Dosage: 375 MG/M2 TOTAL DOSE 693 MG (DAY 1 OF EACH 28-DAY CYCLE)
     Route: 042
     Dates: start: 20170705, end: 20170705
  9. MILURIT(ALLOPURINOLUM) [Concomitant]
     Indication: HYPERURICAEMIA
     Route: 048
     Dates: start: 20170126
  10. ACALABRUTINIB. [Suspect]
     Active Substance: ACALABRUTINIB
     Indication: MANTLE CELL LYMPHOMA
     Route: 048
     Dates: start: 20170314, end: 20170314
  11. METOPROLOL. [Concomitant]
     Active Substance: METOPROLOL
     Indication: HYPERTENSION
     Route: 048
     Dates: start: 20130101
  12. ACALABRUTINIB. [Suspect]
     Active Substance: ACALABRUTINIB
     Indication: MANTLE CELL LYMPHOMA
     Route: 048
     Dates: start: 20170607, end: 20170607
  13. ACALABRUTINIB. [Suspect]
     Active Substance: ACALABRUTINIB
     Indication: MANTLE CELL LYMPHOMA
     Route: 048
     Dates: start: 20170706, end: 20170726
  14. RITUXIMAB. [Suspect]
     Active Substance: RITUXIMAB
     Indication: MANTLE CELL LYMPHOMA
     Dosage: 375 MG/M2 TOTAL DOSE 693 MG (DAY 1 OF EACH 28-DAY CYCLE)
     Route: 042
     Dates: start: 20170607, end: 20170607
  15. BENDAMUSTINE [Suspect]
     Active Substance: BENDAMUSTINE
     Indication: MANTLE CELL LYMPHOMA
     Dosage: (DAYS 1 AND 2 OF EACH 28-DAY CYCLE)
     Route: 042
     Dates: end: 20170420
  16. BENDAMUSTINE [Suspect]
     Active Substance: BENDAMUSTINE
     Indication: MANTLE CELL LYMPHOMA
     Dosage: 164 MG (DAYS 1 AND 2 OF EACH 28-DAY CYCLE)
     Route: 042
     Dates: start: 20170214, end: 20170214
  17. DIOPREL [Concomitant]
     Indication: DIABETES MELLITUS
     Route: 048
     Dates: start: 2010
  18. HEVIRAN [Concomitant]
     Active Substance: ACYCLOVIR
     Indication: INFECTION PROPHYLAXIS
     Route: 048
     Dates: start: 20170215

REACTIONS (2)
  - Pneumonia [Recovered/Resolved]
  - Febrile neutropenia [Recovered/Resolved]

NARRATIVE: CASE EVENT DATE: 20170726
